FAERS Safety Report 9690207 (Version 1)
Quarter: 2013Q4

REPORT INFORMATION
  Report Type: Spontaneous
  Country: US (occurrence: US)
  Receive Date: 20131115
  Receipt Date: 20131115
  Transmission Date: 20140711
  Serious: Yes (Hospitalization, Disabling, Other)
  Sender: FDA-Public Use
  Company Number: US-ASTRAZENECA-2013SE82471

PATIENT
  Age: 53 Year
  Sex: Female
  Weight: 99.8 kg

DRUGS (11)
  1. PRILOSEC OTC [Suspect]
     Indication: GASTROOESOPHAGEAL REFLUX DISEASE
     Dosage: DAILY
     Route: 048
     Dates: start: 1992
  2. PRILOSEC OTC [Suspect]
     Indication: GASTROOESOPHAGEAL REFLUX DISEASE
     Route: 048
  3. NEXIUM [Suspect]
     Indication: GASTROOESOPHAGEAL REFLUX DISEASE
     Dosage: UNKNOWN DAILY
     Route: 048
     Dates: start: 2001
  4. LISINOPRIL [Suspect]
     Indication: BLOOD PRESSURE ABNORMAL
     Route: 048
     Dates: start: 1996
  5. MORPHINE [Suspect]
  6. ELAVIL [Suspect]
     Indication: SLEEP DISORDER
     Route: 048
     Dates: start: 201305
  7. ELAVIL [Suspect]
     Indication: ANTIDEPRESSANT THERAPY
     Route: 048
     Dates: start: 201305
  8. HCTZ [Concomitant]
     Indication: BLOOD PRESSURE ABNORMAL
     Dosage: 12.5 DAILY
     Route: 048
     Dates: start: 1996
  9. CLONAZEPAM [Concomitant]
     Indication: NERVOUS SYSTEM DISORDER
     Route: 048
     Dates: start: 2011
  10. ASPIRIN [Concomitant]
     Indication: PROPHYLAXIS
     Route: 048
     Dates: start: 201311
  11. IMITREX [Concomitant]
     Indication: MIGRAINE
     Route: 048

REACTIONS (17)
  - Bipolar disorder [Not Recovered/Not Resolved]
  - Supraventricular tachycardia [Not Recovered/Not Resolved]
  - Congenital cystic kidney disease [Unknown]
  - Renal failure [Not Recovered/Not Resolved]
  - Pneumonia [Unknown]
  - Sepsis [Unknown]
  - Hepatic failure [Unknown]
  - Anaphylactic reaction [Unknown]
  - Dysphonia [Not Recovered/Not Resolved]
  - Cough [Not Recovered/Not Resolved]
  - Oxygen saturation abnormal [Not Recovered/Not Resolved]
  - Gastrooesophageal reflux disease [Not Recovered/Not Resolved]
  - Tooth erosion [Not Recovered/Not Resolved]
  - Hypotension [Unknown]
  - Oedema peripheral [Unknown]
  - Insomnia [Not Recovered/Not Resolved]
  - Intentional drug misuse [Unknown]
